FAERS Safety Report 14232905 (Version 1)
Quarter: 2017Q4

REPORT INFORMATION
  Report Type: Spontaneous
  Country: US (occurrence: US)
  Receive Date: 20171128
  Receipt Date: 20171128
  Transmission Date: 20180321
  Serious: Yes (Hospitalization)
  Sender: FDA-Public Use
  Company Number: US-JEROME STEVENS PHARMACEUTICALS, INC.-2036183

PATIENT
  Sex: Female

DRUGS (2)
  1. POLICOSANOL SUPPLEMENT [Concomitant]
  2. UNITHROID [Suspect]
     Active Substance: LEVOTHYROXINE SODIUM

REACTIONS (3)
  - Hyperthyroidism [None]
  - Drug interaction [None]
  - Electrolyte imbalance [None]
